FAERS Safety Report 10451651 (Version 2)
Quarter: 2014Q4

REPORT INFORMATION
  Report Type: Report from Study
  Country: HU (occurrence: HU)
  Receive Date: 20140914
  Receipt Date: 20141019
  Transmission Date: 20150528
  Serious: Yes (Hospitalization)
  Sender: FDA-Public Use
  Company Number: HU-BRISTOL-MYERS SQUIBB COMPANY-21376157

PATIENT
  Age: 58 Year
  Sex: Male

DRUGS (3)
  1. KOMBOGLYZE [Suspect]
     Active Substance: METFORMIN HYDROCHLORIDE\SAXAGLIPTIN
     Indication: DIABETES MELLITUS
     Dosage: FILM-COATED TABLET
     Dates: start: 201407
  2. ISOPHANE INSULIN [Concomitant]
     Active Substance: INSULIN NOS
  3. DIAPREL MR [Concomitant]

REACTIONS (3)
  - Acute pulmonary oedema [Not Recovered/Not Resolved]
  - Weight increased [Not Recovered/Not Resolved]
  - Asphyxia [Not Recovered/Not Resolved]

NARRATIVE: CASE EVENT DATE: 201408
